FAERS Safety Report 5594497-1 (Version None)
Quarter: 2007Q4

REPORT INFORMATION
  Report Type: 
  Country: None (occurrence: None)
  Receive Date: 20071218
  Receipt Date: 20070315
  Transmission Date: 20080405
  Serious: Yes (Hospitalization, Other)
  Sender: FDA-Public Use
  Company Number: 2007001945

PATIENT
  Age: 36 Year
  Sex: Male
  Weight: 83.9 kg

DRUGS (1)
  1. BEXTRA [Suspect]
     Indication: CARPAL TUNNEL SYNDROME
     Dosage: 20 MG (20 MG, 1 IN 1 D), ORAL
     Route: 048
     Dates: start: 20030501, end: 20040101

REACTIONS (2)
  - ANXIETY [None]
  - MYOCARDIAL INFARCTION [None]
